FAERS Safety Report 9067433 (Version 1)
Quarter: 2013Q1

REPORT INFORMATION
  Report Type: Spontaneous
  Country: US (occurrence: US)
  Receive Date: 20130214
  Receipt Date: 20130214
  Transmission Date: 20140127
  Serious: Yes (Hospitalization, Other)
  Sender: FDA-Public Use
  Company Number: US-AMGEN-USASP2013008659

PATIENT
  Age: 65 Year
  Sex: Female

DRUGS (13)
  1. PROLIA [Suspect]
     Indication: OSTEOPOROSIS POSTMENOPAUSAL
     Dosage: UNK
     Dates: start: 201112
  2. NEXIUM                             /01479302/ [Concomitant]
     Dosage: 40 MG, QD
  3. LOVASTATIN [Concomitant]
     Dosage: 20 MG, QD
  4. METOPROLOL [Concomitant]
     Dosage: 12.5 MG, BID
  5. PREDNISONE [Concomitant]
     Dosage: 20 MG, QD
  6. ROPINIROLE [Concomitant]
     Dosage: 0.5 MG, 1IN THE AM AND 2 AT HS
  7. NORVASC [Concomitant]
     Dosage: 5 MG, QD
  8. VESICARE [Concomitant]
     Dosage: 10 MG, QD
  9. SYNTHROID [Concomitant]
     Dosage: 200 MUG, QD
  10. SYNTHROID [Concomitant]
     Dosage: 25 MUG, QD
  11. FOLIC ACID [Concomitant]
  12. VITAMIN D                          /00318501/ [Concomitant]
  13. IRON [Concomitant]

REACTIONS (9)
  - Abasia [Unknown]
  - Hallucination [Unknown]
  - Blood calcium decreased [Unknown]
  - Feeling abnormal [Unknown]
  - Memory impairment [Unknown]
  - Mobility decreased [Unknown]
  - Hypophagia [Unknown]
  - Anxiety [Unknown]
  - Dyspnoea [Unknown]
